FAERS Safety Report 10736121 (Version 1)
Quarter: 2015Q1

REPORT INFORMATION
  Report Type: Spontaneous
  Country: US (occurrence: None)
  Receive Date: 20150121
  Receipt Date: 20150121
  Transmission Date: 20150721
  Serious: Yes (Hospitalization)
  Sender: FDA-Public Use
  Company Number: ABR_01934_2015

PATIENT
  Age: 48 Year
  Sex: Male

DRUGS (2)
  1. LAMOTRIGINE. [Suspect]
     Active Substance: LAMOTRIGINE
     Indication: PRODUCT USED FOR UNKNOWN INDICATION
     Dosage: 2 DF, DOUBLE DOSE ORAL?
     Route: 048
  2. TOPRIRAMATE [Concomitant]

REACTIONS (6)
  - Toxicity to various agents [None]
  - Confusional state [None]
  - Ataxia [None]
  - Muscular weakness [None]
  - Accidental overdose [None]
  - Incorrect dose administered [None]
